FAERS Safety Report 4398054-4 (Version None)
Quarter: 2004Q3

REPORT INFORMATION
  Report Type: 
  Country: None (occurrence: None)
  Receive Date: 20040715
  Receipt Date: 20040708
  Transmission Date: 20050211
  Serious: Yes (Other)
  Sender: FDA-Public Use
  Company Number: PHBS2004DK09200

PATIENT
  Sex: Female

DRUGS (5)
  1. SANDIMMUNE [Suspect]
     Indication: ENDOCRINE OPHTHALMOPATHY
     Route: 048
  2. PREDNISOLONE [Concomitant]
     Dosage: 25 MG/D
  3. NEO-MERCAZOLE TAB [Concomitant]
     Dosage: 5 MG/D
     Route: 048
  4. NEO-MERCAZOLE TAB [Concomitant]
     Dosage: 2.5 MG/D
     Route: 048
  5. ANTIHYPERTENSIVES [Concomitant]

REACTIONS (2)
  - CHOLELITHIASIS [None]
  - HEPATOMEGALY [None]
